FAERS Safety Report 15049190 (Version 1)
Quarter: 2018Q2

REPORT INFORMATION
  Report Type: Spontaneous
  Country: PT (occurrence: PT)
  Receive Date: 20180622
  Receipt Date: 20180622
  Transmission Date: 20180711
  Serious: Yes (Other)
  Sender: FDA-Public Use
  Company Number: PT-TEVA-2018-PT-909456

PATIENT
  Age: 69 Year
  Sex: Female

DRUGS (3)
  1. OLMESARTAN [Suspect]
     Active Substance: OLMESARTAN
     Indication: HYPERTENSION
     Route: 065
  2. ALISKIREN [Concomitant]
     Active Substance: ALISKIREN
     Indication: HYPERTENSION
     Route: 065
  3. PANTOPRAZOLE [Concomitant]
     Active Substance: PANTOPRAZOLE
     Indication: GASTROOESOPHAGEAL REFLUX DISEASE
     Route: 065

REACTIONS (6)
  - Gastrointestinal disorder [Recovered/Resolved]
  - Hypovolaemic shock [Recovering/Resolving]
  - Deep vein thrombosis [Recovering/Resolving]
  - Acute kidney injury [Recovering/Resolving]
  - Metabolic acidosis [Recovering/Resolving]
  - Dehydration [Recovering/Resolving]
